APPROVED DRUG PRODUCT: X-TROZINE
Active Ingredient: PHENDIMETRAZINE TARTRATE
Strength: 35MG
Dosage Form/Route: TABLET;ORAL
Application: A086552 | Product #001
Applicant: SHIRE RICHWOOD INC
Approved: Approved Prior to Jan 1, 1982 | RLD: No | RS: No | Type: DISCN